FAERS Safety Report 22609189 (Version 1)
Quarter: 2023Q2

REPORT INFORMATION
  Report Type: Spontaneous
  Country: US (occurrence: None)
  Receive Date: 20230615
  Receipt Date: 20230615
  Transmission Date: 20230722
  Serious: Yes (Other)
  Sender: FDA-Public Use
  Company Number: None

PATIENT
  Age: 69 Year
  Sex: Female
  Weight: 49.05 kg

DRUGS (5)
  1. AJOVY [Suspect]
     Active Substance: FREMANEZUMAB-VFRM
     Indication: Migraine
     Dosage: OTHER QUANTITY : 3 INJECTION(S);?OTHER FREQUENCY : 3 INJECTIONS ONCE;?
     Route: 058
     Dates: start: 20230310, end: 20230310
  2. IMITREX [Concomitant]
     Active Substance: SUMATRIPTAN SUCCINATE
  3. ACYCLOVIR [Concomitant]
     Active Substance: ACYCLOVIR
  4. CLIMARA [Concomitant]
     Active Substance: ESTRADIOL
  5. VITAMINS [Concomitant]
     Active Substance: VITAMINS

REACTIONS (2)
  - Constipation [None]
  - Fatigue [None]

NARRATIVE: CASE EVENT DATE: 20230327
